FAERS Safety Report 6355229-2 (Version None)
Quarter: 2009Q3

REPORT INFORMATION
  Report Type: 
  Country: None (occurrence: None)
  Receive Date: 20090914
  Receipt Date: 20090903
  Transmission Date: 20100115
  Serious: Yes (Death)
  Sender: FDA-Public Use
  Company Number: JP-BAXTER-2008BH010914

PATIENT
  Age: 17 Year
  Sex: Male

DRUGS (12)
  1. ENDOXAN BAXTER [Suspect]
     Indication: CHLOROMA
     Route: 065
     Dates: start: 20080101, end: 20080101
  2. CYTARABINE [Suspect]
     Indication: CHLOROMA
     Route: 065
     Dates: start: 20080101, end: 20080101
  3. CYTARABINE [Suspect]
     Indication: BONE MARROW CONDITIONING REGIMEN
     Route: 065
     Dates: start: 20080101, end: 20080101
  4. CYTARABINE [Suspect]
     Dosage: DOSE UNIT:UNKNOWN
     Route: 065
  5. CYTARABINE [Suspect]
     Dosage: DOSE UNIT:UNKNOWN
     Route: 065
  6. DAUNORUBICIN HCL [Suspect]
     Indication: CHLOROMA
     Dosage: DOSE UNIT:UNKNOWN
     Route: 065
  7. MITOXANTRONE [Suspect]
     Indication: CHLOROMA
     Dosage: DOSE UNIT:UNKNOWN
     Route: 065
  8. IDARUBICIN HYDROCHLORIDE [Suspect]
     Indication: DRUG USE FOR UNKNOWN INDICATION
     Dosage: DOSE UNIT:UNKNOWN
     Route: 065
  9. ENOCITABINE [Concomitant]
     Indication: CHLOROMA
  10. ETOPOSIDE [Concomitant]
     Indication: CHLOROMA
  11. CYCLOSPORINE [Concomitant]
     Indication: PROPHYLAXIS AGAINST GRAFT VERSUS HOST DISEASE
     Dates: start: 20080101, end: 20080101
  12. MYCOPHENOLATE MOFETIL [Concomitant]
     Indication: PROPHYLAXIS AGAINST GRAFT VERSUS HOST DISEASE
     Dates: start: 20080101, end: 20080101

REACTIONS (4)
  - CARDIAC ARREST [None]
  - MULTI-ORGAN FAILURE [None]
  - THROMBOTIC MICROANGIOPATHY [None]
  - VENOOCCLUSIVE LIVER DISEASE [None]
